FAERS Safety Report 6562057-1 (Version None)
Quarter: 2010Q1

REPORT INFORMATION
  Report Type: 
  Country: None (occurrence: None)
  Receive Date: 20100130
  Receipt Date: 20091112
  Transmission Date: 20100710
  Serious: No
  Sender: FDA-Public Use
  Company Number: US-ABBOTT-09P-163-0602391-00

PATIENT
  Sex: Male
  Weight: 87.622 kg

DRUGS (11)
  1. HUMIRA [Suspect]
     Indication: CROHN'S DISEASE
     Dates: start: 20060414, end: 20090505
  2. CREON [Concomitant]
     Indication: CROHN'S DISEASE
  3. PENTASA [Concomitant]
     Indication: CROHN'S DISEASE
  4. ELAVIL [Concomitant]
     Indication: CROHN'S DISEASE
  5. CELEBREX [Concomitant]
     Indication: CROHN'S DISEASE
  6. PRILOSEC [Concomitant]
     Indication: DYSPEPSIA
  7. MULTIPLE VITAMINS [Concomitant]
     Indication: VITAMIN SUPPLEMENTATION
  8. IRON [Concomitant]
     Indication: ANAEMIA
  9. CALCIUM [Concomitant]
     Indication: MINERAL SUPPLEMENTATION
  10. NORVASC [Concomitant]
     Indication: HYPERTENSION
  11. FOLIC ACID [Concomitant]
     Indication: CROHN'S DISEASE

REACTIONS (2)
  - DYSPNOEA EXERTIONAL [None]
  - OBSTRUCTIVE AIRWAYS DISORDER [None]
